FAERS Safety Report 9582782 (Version 1)
Quarter: 2013Q4

REPORT INFORMATION
  Report Type: Spontaneous
  Country: US (occurrence: US)
  Receive Date: 20131002
  Receipt Date: 20131002
  Transmission Date: 20140711
  Serious: No
  Sender: FDA-Public Use
  Company Number: US-AMGEN-USASP2013043004

PATIENT
  Age: 43 Year
  Sex: Female

DRUGS (1)
  1. ENBREL [Suspect]
     Indication: CROHN^S DISEASE
     Dosage: 50 MG, 2 TIMES/WK
     Route: 058
     Dates: start: 20130201, end: 20130612

REACTIONS (1)
  - Treatment failure [Unknown]
